FAERS Safety Report 4910542-8 (Version None)
Quarter: 2006Q1

REPORT INFORMATION
  Report Type: 
  Country: None (occurrence: None)
  Receive Date: 20060214
  Receipt Date: 20060110
  Transmission Date: 20060701
  Serious: Yes (Hospitalization)
  Sender: FDA-Public Use
  Company Number: BR-ROCHE-431654

PATIENT
  Age: 19 Year
  Sex: Male
  Weight: 78 kg

DRUGS (2)
  1. ROACUTAN [Suspect]
     Indication: ACNE
     Route: 048
     Dates: start: 20050715, end: 20051108
  2. ROACUTAN [Suspect]
     Route: 048
     Dates: start: 20051122, end: 20051129

REACTIONS (5)
  - ARTHRALGIA [None]
  - DYSPNOEA [None]
  - FACE OEDEMA [None]
  - INSOMNIA [None]
  - MEDIASTINUM NEOPLASM [None]
